FAERS Safety Report 24905679 (Version 1)
Quarter: 2025Q1

REPORT INFORMATION
  Report Type: Spontaneous
  Country: US (occurrence: US)
  Receive Date: 20250130
  Receipt Date: 20250130
  Transmission Date: 20250409
  Serious: No
  Sender: HRA PHARMA
  Company Number: US-ORG100014127-2024000208

PATIENT
  Age: 6 Week
  Sex: Male
  Weight: 3.1 kg

DRUGS (3)
  1. METYRAPONE [Suspect]
     Active Substance: METYRAPONE
     Indication: Cushing^s syndrome
     Dosage: 18.5 MG/KG DIVIDED TWICE DAILY
  2. CLONIDINE [Concomitant]
     Active Substance: CLONIDINE
     Indication: Hypertension
  3. METOPROLOL [Concomitant]
     Active Substance: METOPROLOL
     Indication: Hypertension

REACTIONS (2)
  - Incorrect route of product administration [Unknown]
  - Off label use [Unknown]
